FAERS Safety Report 11039098 (Version 1)
Quarter: 2015Q2

REPORT INFORMATION
  Report Type: Spontaneous
  Country: US (occurrence: US)
  Receive Date: 20150416
  Receipt Date: 20150416
  Transmission Date: 20150821
  Serious: Yes (Other)
  Sender: FDA-Public Use
  Company Number: US-MYLANLABS-2015M1012422

PATIENT

DRUGS (4)
  1. FLUOROURACIL. [Concomitant]
     Active Substance: FLUOROURACIL
     Indication: ADENOCARCINOMA OF COLON
     Dosage: 400 MG/M2 PUSH ON DAY 1
     Route: 041
  2. OXALIPLATIN. [Suspect]
     Active Substance: OXALIPLATIN
     Indication: ADENOCARCINOMA OF COLON
     Dosage: 85 MG/M2, OVER 2 HR, ON DAY 1, TOTAL 16 CYCLES
     Route: 042
  3. BEVACIZUMAB [Concomitant]
     Active Substance: BEVACIZUMAB
     Indication: ADENOCARCINOMA OF COLON
     Dosage: 5 MG/KG ON DAY 1 CYCLED EVERY 14 DAYS, TOTAL 30 CYCLES
     Route: 042
  4. FOLIC ACID. [Concomitant]
     Active Substance: FOLIC ACID
     Indication: ADENOCARCINOMA OF COLON
     Dosage: 400 MG/M2 OVER 2 HOUR ON DAY 1
     Route: 042

REACTIONS (3)
  - Autoimmune pancytopenia [Recovered/Resolved]
  - Neuropathy peripheral [Recovered/Resolved]
  - Haemolytic anaemia [Recovered/Resolved]
